FAERS Safety Report 7209375-1 (Version None)
Quarter: 2011Q1

REPORT INFORMATION
  Report Type: 
  Country: None (occurrence: None)
  Receive Date: 20110104
  Receipt Date: 20101227
  Transmission Date: 20110831
  Serious: Yes (Death, Other)
  Sender: FDA-Public Use
  Company Number: US-TEVA-261727USA

PATIENT
  Age: 67 Year
  Sex: Male

DRUGS (3)
  1. CARMUSTINE [Suspect]
  2. BEVACIZUMAB [Suspect]
     Indication: CHEMOTHERAPY
  3. IRINOTECAN HCL [Suspect]
     Indication: CHEMOTHERAPY

REACTIONS (1)
  - INTRACRANIAL HYPOTENSION [None]
